FAERS Safety Report 5355108-3 (Version None)
Quarter: 2007Q2

REPORT INFORMATION
  Report Type: 
  Country: None (occurrence: None)
  Receive Date: 20070613
  Receipt Date: 20070605
  Transmission Date: 20071010
  Serious: Yes (Hospitalization, Other)
  Sender: FDA-Public Use
  Company Number: PHBS2007IN09221

PATIENT
  Age: 64 Year
  Sex: Female

DRUGS (2)
  1. TRIOPTAL [Suspect]
     Indication: GRAND MAL CONVULSION
     Dosage: 600 MG, BID
     Route: 048
  2. THIAZIDES [Suspect]

REACTIONS (6)
  - BALANCE DISORDER [None]
  - CONVULSION [None]
  - DECREASED APPETITE [None]
  - HYPONATRAEMIA [None]
  - NAUSEA [None]
  - SOMNOLENCE [None]
